FAERS Safety Report 9666193 (Version 1)
Quarter: 2013Q4

REPORT INFORMATION
  Report Type: Spontaneous
  Country: CO (occurrence: CO)
  Receive Date: 20131104
  Receipt Date: 20131104
  Transmission Date: 20140711
  Serious: Yes (Other)
  Sender: FDA-Public Use
  Company Number: PHHY2013CO124514

PATIENT
  Age: 46 Year
  Sex: Female

DRUGS (1)
  1. GILENYA [Suspect]
     Indication: MULTIPLE SCLEROSIS
     Dosage: 0.5 MG, QD
     Route: 048
     Dates: start: 20121218

REACTIONS (5)
  - Dry eye [Unknown]
  - Eye allergy [Unknown]
  - Immunosuppression [Unknown]
  - Upper respiratory tract infection [Unknown]
  - Bronchitis [Unknown]
